FAERS Safety Report 23867833 (Version 1)
Quarter: 2024Q2

REPORT INFORMATION
  Report Type: Spontaneous
  Country: US (occurrence: None)
  Receive Date: 20240516
  Receipt Date: 20240516
  Transmission Date: 20240716
  Serious: Yes (Life-Threatening, Other)
  Sender: FDA-Public Use
  Company Number: None

PATIENT
  Age: 40 Year
  Sex: Male
  Weight: 67.5 kg

DRUGS (4)
  1. REXULTI [Suspect]
     Active Substance: BREXPIPRAZOLE
  2. TRAMADOL [Concomitant]
     Active Substance: TRAMADOL\TRAMADOL HYDROCHLORIDE
  3. REXULTI [Concomitant]
     Active Substance: BREXPIPRAZOLE
  4. DEXTROAMPHETAMINE SULFATE [Concomitant]
     Active Substance: DEXTROAMPHETAMINE SULFATE

REACTIONS (17)
  - Road traffic accident [None]
  - Leukopenia [None]
  - Neutropenia [None]
  - Agranulocytosis [None]
  - Pharyngitis [None]
  - Choking [None]
  - Dyspnoea [None]
  - Spinal pain [None]
  - Dysphagia [None]
  - Victim of abuse [None]
  - Prescribed overdose [None]
  - Educational problem [None]
  - Rhabdomyolysis [None]
  - Therapy cessation [None]
  - Product communication issue [None]
  - Victim of crime [None]
  - Musculoskeletal pain [None]

NARRATIVE: CASE EVENT DATE: 20240508
